FAERS Safety Report 4575436-9 (Version None)
Quarter: 2005Q1

REPORT INFORMATION
  Report Type: 
  Country: None (occurrence: None)
  Receive Date: 20050131
  Receipt Date: 20050131
  Transmission Date: 20050727
  Serious: Yes (Life-Threatening, Hospitalization)
  Sender: FDA-Public Use
  Company Number: None

PATIENT
  Age: 48 Year
  Sex: Female
  Weight: 51.7101 kg

DRUGS (4)
  1. ASENDIN [Suspect]
     Indication: DEPRESSION
     Dosage: 200MG   BEDTIME   ORAL
     Route: 048
     Dates: start: 19900205, end: 19940415
  2. ASENDIN [Suspect]
     Indication: INSOMNIA
     Dosage: 200MG   BEDTIME   ORAL
     Route: 048
     Dates: start: 19900205, end: 19940415
  3. PREMARIN [Suspect]
     Indication: MENOPAUSE
     Dosage: .5   ONCE DAILY   ORAL
     Route: 048
     Dates: start: 19920103, end: 19920425
  4. REMERON [Concomitant]

REACTIONS (6)
  - BREAST CANCER [None]
  - BREAST DISCHARGE [None]
  - DRUG INTERACTION [None]
  - FEELING ABNORMAL [None]
  - HORMONE LEVEL ABNORMAL [None]
  - PRECANCEROUS CELLS PRESENT [None]
